FAERS Safety Report 17588684 (Version 1)
Quarter: 2020Q1

REPORT INFORMATION
  Report Type: Spontaneous
  Country: DE (occurrence: DE)
  Receive Date: 20200327
  Receipt Date: 20200327
  Transmission Date: 20200409
  Serious: Yes (Life-Threatening, Hospitalization, Other)
  Sender: FDA-Public Use
  Company Number: DE-009507513-2003DEU008626

PATIENT
  Age: 24 Year
  Sex: Female

DRUGS (1)
  1. NUVARING [Suspect]
     Active Substance: ETHINYL ESTRADIOL\ETONOGESTREL
     Dosage: 1 RING, UNK
     Route: 067
     Dates: start: 2013

REACTIONS (4)
  - Cerebral venous sinus thrombosis [Unknown]
  - Epilepsy [Unknown]
  - Fungal infection [Unknown]
  - Hemiplegia [Unknown]

NARRATIVE: CASE EVENT DATE: 202003
